FAERS Safety Report 25924013 (Version 1)
Quarter: 2025Q4

REPORT INFORMATION
  Report Type: Spontaneous
  Country: US (occurrence: None)
  Receive Date: 20251011
  Receipt Date: 20251011
  Transmission Date: 20260119
  Serious: Yes (Other)
  Sender: FDA-CTU
  Company Number: None

PATIENT
  Age: 61 Year
  Sex: Female
  Weight: 81 kg

DRUGS (1)
  1. HUMIRA [Suspect]
     Active Substance: ADALIMUMAB
     Dosage: OTHER STRENGTH : INJECTION;?OTHER QUANTITY : 1 INJECTION(S);?OTHER FREQUENCY : EVERY 14 DAYS;?
     Route: 058
     Dates: start: 20251004, end: 20251004

REACTIONS (5)
  - Pain [None]
  - Insomnia [None]
  - Crying [None]
  - Tremor [None]
  - Screaming [None]

NARRATIVE: CASE EVENT DATE: 20251004
